FAERS Safety Report 8487719-0 (Version None)
Quarter: 2012Q3

REPORT INFORMATION
  Report Type: 
  Country: None (occurrence: None)
  Receive Date: 20120705
  Receipt Date: 20120702
  Transmission Date: 20120928
  Serious: No
  Sender: FDA-Public Use
  Company Number: US-BAYER-2012-065388

PATIENT
  Age: 64 Year
  Sex: Male

DRUGS (4)
  1. LEVITRA [Suspect]
     Indication: ERECTILE DYSFUNCTION
     Dosage: .5 DF, BID
     Dates: start: 20120624, end: 20120624
  2. LIPITOR [Concomitant]
     Indication: BLOOD CHOLESTEROL INCREASED
  3. VERAPAMIL [Concomitant]
     Indication: GOUT
  4. ATENOLOL [Concomitant]
     Indication: BLOOD PRESSURE ABNORMAL

REACTIONS (4)
  - JOINT CREPITATION [None]
  - MUSCULOSKELETAL STIFFNESS [None]
  - HEAD DISCOMFORT [None]
  - DRUG INEFFECTIVE [None]
